FAERS Safety Report 19296065 (Version 1)
Quarter: 2021Q2

REPORT INFORMATION
  Report Type: Spontaneous
  Country: US (occurrence: US)
  Receive Date: 20210524
  Receipt Date: 20210524
  Transmission Date: 20210717
  Serious: Yes (Other)
  Sender: FDA-Public Use
  Company Number: US-PURDUE-USA-2020-0164627

PATIENT
  Sex: Male

DRUGS (3)
  1. PERCOCET                           /00446701/ [Suspect]
     Active Substance: ACETAMINOPHEN\OXYCODONE HYDROCHLORIDE\OXYCODONE TEREPHTHALATE
     Indication: SPINAL OPERATION
     Dosage: UNK
     Route: 065
  2. OXYCONTIN [Suspect]
     Active Substance: OXYCODONE HYDROCHLORIDE
     Indication: SPINAL OPERATION
     Dosage: UNK
     Route: 048
  3. OXYCODONE/ ACETAMINOPHEN TABLETS [Suspect]
     Active Substance: ACETAMINOPHEN\OXYCODONE HYDROCHLORIDE
     Indication: SPINAL OPERATION
     Dosage: UNK
     Route: 048

REACTIONS (13)
  - Abdominal discomfort [Unknown]
  - Fatigue [Unknown]
  - Anxiety [Unknown]
  - Depression [Unknown]
  - Bladder disorder [Unknown]
  - Drug dependence [Unknown]
  - Renal disorder [Unknown]
  - Visual impairment [Unknown]
  - Anorectal disorder [Unknown]
  - Feeling abnormal [Unknown]
  - Sleep disorder [Unknown]
  - Panic attack [Unknown]
  - Liver disorder [Unknown]
